FAERS Safety Report 12466188 (Version 2)
Quarter: 2016Q3

REPORT INFORMATION
  Report Type: Spontaneous
  Country: US (occurrence: US)
  Receive Date: 20160602
  Receipt Date: 20160707
  Transmission Date: 20161109
  Serious: Yes (Other)
  Sender: FDA-Public Use
  Company Number: US-TEVA-664984USA

PATIENT
  Age: 39 Year
  Sex: Female

DRUGS (7)
  1. ZOLPIDEM [Interacting]
     Active Substance: ZOLPIDEM\ZOLPIDEM TARTRATE
     Indication: INSOMNIA
     Dosage: AT NIGHT
     Route: 065
  2. ALCOHOL. [Suspect]
     Active Substance: ALCOHOL
     Indication: PHOBIA OF FLYING
  3. ALPRAZOLAM. [Suspect]
     Active Substance: ALPRAZOLAM
     Indication: PHOBIA OF FLYING
  4. SERTRALINE [Interacting]
     Active Substance: SERTRALINE HYDROCHLORIDE
     Route: 065
  5. VENLAFAXINE [Suspect]
     Active Substance: VENLAFAXINE HYDROCHLORIDE
     Route: 065
  6. ZOLPIDEM [Interacting]
     Active Substance: ZOLPIDEM\ZOLPIDEM TARTRATE
     Indication: SUICIDE ATTEMPT
  7. ALPRAZOLAM. [Suspect]
     Active Substance: ALPRAZOLAM
     Indication: SUICIDE ATTEMPT

REACTIONS (12)
  - Intentional overdose [Recovered/Resolved]
  - Suicide attempt [Recovered/Resolved]
  - Restlessness [Recovered/Resolved]
  - Delirium [Recovered/Resolved]
  - Euphoric mood [Recovered/Resolved]
  - Aggression [Recovered/Resolved]
  - Toxicity to various agents [Recovered/Resolved]
  - Suicidal ideation [Recovered/Resolved]
  - Agitation [Recovered/Resolved]
  - Akathisia [Recovered/Resolved]
  - Homicide [Recovered/Resolved]
  - Drug interaction [Recovered/Resolved]
